FAERS Safety Report 8821456 (Version 1)
Quarter: 2012Q4

REPORT INFORMATION
  Report Type: Report from Study
  Country: US (occurrence: US)
  Receive Date: 20121002
  Receipt Date: 20121002
  Transmission Date: 20130627
  Serious: Yes (Hospitalization, Other)
  Sender: FDA-Public Use
  Company Number: US-ROCHE-1132614

PATIENT
  Age: 48 Year
  Sex: Male
  Weight: 82.3 kg

DRUGS (4)
  1. VISMODEGIB [Suspect]
     Indication: NEOPLASM MALIGNANT
     Route: 048
     Dates: start: 20120719, end: 20120827
  2. SIROLIMUS [Suspect]
     Indication: NEOPLASM MALIGNANT
     Route: 048
     Dates: start: 20120719, end: 20120827
  3. REMERON [Concomitant]
  4. DILAUDID [Concomitant]
     Route: 051

REACTIONS (3)
  - Tumour pain [Unknown]
  - Depression [Unknown]
  - Blood alkaline phosphatase increased [Unknown]
